FAERS Safety Report 10400568 (Version 1)
Quarter: 2014Q3

REPORT INFORMATION
  Report Type: Spontaneous
  Country: US (occurrence: US)
  Receive Date: 20140821
  Receipt Date: 20140821
  Transmission Date: 20150326
  Serious: No
  Sender: FDA-Public Use
  Company Number: US-ASTRAZENECA-2013SE69065

PATIENT
  Age: 70 Year
  Sex: Female

DRUGS (8)
  1. METFORMIN [Concomitant]
     Active Substance: METFORMIN HYDROCHLORIDE
  2. ALBUTEROL NEBULIZER [Concomitant]
     Active Substance: ALBUTEROL
     Route: 055
  3. BABY ASPIRIN [Concomitant]
     Active Substance: ASPIRIN
  4. GLIPIZIDE. [Concomitant]
     Active Substance: GLIPIZIDE
  5. SYMBICORT [Suspect]
     Active Substance: BUDESONIDE\FORMOTEROL FUMARATE DIHYDRATE
     Dosage: 80/4.5 MCG, 2 PUFFS BID
     Route: 055
     Dates: end: 2013
  6. SIMVASTATIN. [Concomitant]
     Active Substance: SIMVASTATIN
  7. SYNTHROID [Concomitant]
     Active Substance: LEVOTHYROXINE SODIUM
  8. LISINOPRIL. [Suspect]
     Active Substance: LISINOPRIL
     Route: 048

REACTIONS (2)
  - Dizziness [Recovered/Resolved]
  - Dry mouth [Recovered/Resolved]
